FAERS Safety Report 5141029-8 (Version None)
Quarter: 2006Q4

REPORT INFORMATION
  Report Type: 
  Country: None (occurrence: None)
  Receive Date: 20061026
  Receipt Date: 20061013
  Transmission Date: 20070319
  Serious: Yes (Other)
  Sender: FDA-Public Use
  Company Number: 2006EU002739

PATIENT
  Sex: Female

DRUGS (5)
  1. PROGRAF [Suspect]
     Indication: HEART TRANSPLANT
     Dosage: 3 MG, BID, ORAL
     Route: 048
  2. CORTANCYL (PREDNISONE) [Suspect]
     Indication: HEART TRANSPLANT
     Dosage: 5 MG/D, ORAL
     Route: 048
  3. IMURAN [Suspect]
     Dosage: 50 MG/D, ORAL
     Route: 048
  4. PRAVASTATIN [Suspect]
     Dosage: 40 MG/D, ORAL
     Route: 048
  5. PANTOPRAZOLE SODIUM [Suspect]
     Dosage: 20 MG/D, ORAL
     Route: 048

REACTIONS (3)
  - ABORTION [None]
  - DRUG EXPOSURE DURING PREGNANCY [None]
  - PREGNANCY [None]
